FAERS Safety Report 9555932 (Version 1)
Quarter: 2013Q3

REPORT INFORMATION
  Report Type: Spontaneous
  Country: FR (occurrence: FR)
  Receive Date: 20130926
  Receipt Date: 20130926
  Transmission Date: 20140515
  Serious: Yes (Hospitalization)
  Sender: FDA-Public Use
  Company Number: FR-SANOFI-AVENTIS-2013SA092562

PATIENT
  Age: 71 Year
  Sex: Male

DRUGS (38)
  1. CORTANCYL [Suspect]
     Indication: B-CELL LYMPHOMA
     Route: 065
     Dates: start: 20111128
  2. CORTANCYL [Suspect]
     Indication: B-CELL LYMPHOMA
     Route: 065
     Dates: start: 20111219
  3. CORTANCYL [Suspect]
     Indication: B-CELL LYMPHOMA
     Route: 065
     Dates: start: 20120109
  4. CORTANCYL [Suspect]
     Indication: B-CELL LYMPHOMA
     Route: 065
     Dates: start: 20120130
  5. CORTANCYL [Suspect]
     Indication: B-CELL LYMPHOMA
     Route: 065
     Dates: start: 201202
  6. CORTANCYL [Suspect]
     Indication: B-CELL LYMPHOMA
     Route: 065
     Dates: start: 20120312
  7. IRBESARTAN [Suspect]
     Indication: HYPERTENSION
     Route: 065
  8. MABTHERA [Suspect]
     Indication: B-CELL LYMPHOMA
     Route: 042
     Dates: start: 20111219
  9. MABTHERA [Suspect]
     Indication: B-CELL LYMPHOMA
     Route: 065
     Dates: start: 20130210, end: 20130210
  10. MABTHERA [Suspect]
     Indication: B-CELL LYMPHOMA
     Route: 065
     Dates: start: 20121217, end: 20121217
  11. MABTHERA [Suspect]
     Indication: B-CELL LYMPHOMA
     Route: 042
     Dates: start: 20111128
  12. MABTHERA [Suspect]
     Indication: B-CELL LYMPHOMA
     Route: 065
     Dates: start: 20121022, end: 20121022
  13. MABTHERA [Suspect]
     Indication: B-CELL LYMPHOMA
     Route: 065
     Dates: start: 20120827, end: 20120827
  14. MABTHERA [Suspect]
     Indication: B-CELL LYMPHOMA
     Route: 065
     Dates: start: 20120702, end: 20120702
  15. MABTHERA [Suspect]
     Indication: B-CELL LYMPHOMA
     Route: 042
     Dates: start: 20120423
  16. MABTHERA [Suspect]
     Indication: B-CELL LYMPHOMA
     Route: 042
     Dates: start: 20120402
  17. MABTHERA [Suspect]
     Indication: B-CELL LYMPHOMA
     Route: 042
     Dates: start: 20120312
  18. MABTHERA [Suspect]
     Indication: B-CELL LYMPHOMA
     Route: 042
     Dates: start: 201202
  19. MABTHERA [Suspect]
     Indication: B-CELL LYMPHOMA
     Route: 042
     Dates: start: 20120130
  20. MABTHERA [Suspect]
     Indication: B-CELL LYMPHOMA
     Route: 042
     Dates: start: 20120109
  21. ENDOXAN [Suspect]
     Indication: B-CELL LYMPHOMA
     Route: 042
     Dates: start: 20111128
  22. ENDOXAN [Suspect]
     Indication: B-CELL LYMPHOMA
     Route: 042
     Dates: start: 20111219
  23. ENDOXAN [Suspect]
     Indication: B-CELL LYMPHOMA
     Route: 042
     Dates: start: 20120109
  24. ENDOXAN [Suspect]
     Indication: B-CELL LYMPHOMA
     Route: 042
     Dates: start: 20120130
  25. ENDOXAN [Suspect]
     Indication: B-CELL LYMPHOMA
     Route: 042
     Dates: start: 201202
  26. ENDOXAN [Suspect]
     Indication: B-CELL LYMPHOMA
     Route: 042
     Dates: start: 20120312
  27. MYOCET [Suspect]
     Indication: B-CELL LYMPHOMA
     Route: 042
     Dates: start: 20111128
  28. MYOCET [Suspect]
     Indication: B-CELL LYMPHOMA
     Route: 042
     Dates: start: 20111219
  29. MYOCET [Suspect]
     Indication: B-CELL LYMPHOMA
     Route: 042
     Dates: start: 20120109
  30. MYOCET [Suspect]
     Indication: B-CELL LYMPHOMA
     Route: 042
     Dates: start: 20120130
  31. MYOCET [Suspect]
     Indication: B-CELL LYMPHOMA
     Route: 042
     Dates: start: 201202
  32. MYOCET [Suspect]
     Indication: B-CELL LYMPHOMA
     Route: 042
     Dates: start: 20120312
  33. ONCOVIN [Suspect]
     Indication: B-CELL LYMPHOMA
     Route: 042
     Dates: start: 20111128
  34. ONCOVIN [Suspect]
     Indication: B-CELL LYMPHOMA
     Route: 042
     Dates: start: 20111219
  35. ONCOVIN [Suspect]
     Indication: B-CELL LYMPHOMA
     Route: 042
     Dates: start: 20120109
  36. ONCOVIN [Suspect]
     Indication: B-CELL LYMPHOMA
     Route: 042
     Dates: start: 20120130
  37. ONCOVIN [Suspect]
     Indication: B-CELL LYMPHOMA
     Route: 042
     Dates: start: 20120312
  38. ONCOVIN [Suspect]
     Indication: B-CELL LYMPHOMA
     Route: 042
     Dates: start: 201202

REACTIONS (1)
  - Lung adenocarcinoma [Not Recovered/Not Resolved]
